FAERS Safety Report 8529988-4 (Version None)
Quarter: 2012Q3

REPORT INFORMATION
  Report Type: 
  Country: None (occurrence: None)
  Receive Date: 20120723
  Receipt Date: 20111209
  Transmission Date: 20120928
  Serious: No
  Sender: FDA-Public Use
  Company Number: US-GLAXOSMITHKLINE-A0957537A

PATIENT
  Age: 73 Year
  Sex: Female

DRUGS (2)
  1. TRIAMTERENE AND HYDROCHLOROTHIAZIDE [Suspect]
     Indication: HYPERTENSION
     Dosage: 37.5MG PER DAY
     Route: 048
     Dates: start: 20100101, end: 20100101
  2. FEMARA [Concomitant]

REACTIONS (2)
  - MALAISE [None]
  - THERAPEUTIC RESPONSE DECREASED [None]
